FAERS Safety Report 8816505 (Version 1)
Quarter: 2012Q4

REPORT INFORMATION
  Report Type: Spontaneous
  Country: DE (occurrence: None)
  Receive Date: 20120927
  Receipt Date: 20120927
  Transmission Date: 20130627
  Serious: Yes (Life-Threatening, Hospitalization)
  Sender: FDA-Public Use
  Company Number: AUR-APL-2012-04035

PATIENT
  Age: 85 Year
  Sex: Female
  Weight: 67 kg

DRUGS (18)
  1. METFORMIN (METFORMIN) [Suspect]
     Indication: TYPE 2 DIABETES MELLITUS
     Route: 048
     Dates: start: 20110111
  2. METFORMIN (METFORMIN) [Suspect]
     Indication: TYPE 2 DIABETES MELLITUS
     Dates: start: 20120201
  3. METFORMIN (METFORMIN) [Suspect]
     Indication: TYPE 2 DIABETES MELLITUS
  4. L-THYROXIN [Concomitant]
  5. ALLOPURINOL (ALLOPURINOL) [Concomitant]
  6. DETRUSITOL (TOLTERODINE) [Concomitant]
  7. TEBONIN FORTE (GINKGO BILOBA EXTRACT) [Concomitant]
  8. CAPTOPRIL (CAPTOPRIL) [Concomitant]
  9. STILNOX (ZOLPIDEM) [Concomitant]
  10. REMERON (MIRTAZAPINE) [Concomitant]
  11. TOREM (TORASEMIDE) [Concomitant]
  12. AQUAPHOR (XIPAMIDE) [Concomitant]
  13. AMLODIPINE (AMLODIPINE) [Concomitant]
  14. ASS (ACETYLSALICYLIC ACID) [Concomitant]
  15. PANTOZOL [Concomitant]
  16. BELOK-ZOK MITE (METOPROLOL SUCCINATE) [Concomitant]
  17. NACOM (SINEMET) [Concomitant]
  18. CEFUROXIME (CEFUROXIME) [Concomitant]

REACTIONS (5)
  - Lactic acidosis [None]
  - Renal failure acute [None]
  - Hyperkalaemia [None]
  - Atrioventricular block complete [None]
  - Drug level increased [None]
